FAERS Safety Report 4602843-8 (Version None)
Quarter: 2005Q1

REPORT INFORMATION
  Report Type: 
  Country: None (occurrence: None)
  Receive Date: 20050307
  Receipt Date: 20050228
  Transmission Date: 20050727
  Serious: Yes (Life-Threatening)
  Sender: FDA-Public Use
  Company Number: 2005AP01424

PATIENT
  Age: 82 Year
  Sex: Male

DRUGS (1)
  1. IRESSA [Suspect]
     Indication: SQUAMOUS CELL CARCINOMA
     Dosage: 250 MG DILY PO
     Route: 048
     Dates: start: 20050224, end: 20050224

REACTIONS (1)
  - ATRIAL FLUTTER [None]
